FAERS Safety Report 7109781-X (Version None)
Quarter: 2010Q4

REPORT INFORMATION
  Report Type: 
  Country: None (occurrence: None)
  Receive Date: 20101118
  Receipt Date: 20101104
  Transmission Date: 20110411
  Serious: Yes (Other)
  Sender: FDA-Public Use
  Company Number: NL-RANBAXY-2010RR-39125

PATIENT
  Sex: Male

DRUGS (1)
  1. OFLOXACIN [Suspect]
     Dosage: 400 MG, QD
     Route: 048
     Dates: start: 20100920, end: 20100922

REACTIONS (7)
  - DIZZINESS [None]
  - FEELING DRUNK [None]
  - IRRITABILITY [None]
  - PAIN [None]
  - PHOTOSENSITIVITY REACTION [None]
  - SKIN BURNING SENSATION [None]
  - SUICIDAL IDEATION [None]
